FAERS Safety Report 11768789 (Version 1)
Quarter: 2015Q4

REPORT INFORMATION
  Report Type: Spontaneous
  Country: US (occurrence: US)
  Receive Date: 20151123
  Receipt Date: 20151123
  Transmission Date: 20160304
  Serious: No
  Sender: FDA-Public Use
  Company Number: US-PFIZER INC-2015386182

PATIENT
  Age: 28 Year
  Sex: Female

DRUGS (12)
  1. PAROXETINE [Concomitant]
     Active Substance: PAROXETINE\PAROXETINE HYDROCHLORIDE
     Dosage: 40 MG, 1X/DAY
  2. DIPHENHYDRAMINE. [Concomitant]
     Active Substance: DIPHENHYDRAMINE
     Dosage: 50 MG, EVERY 4 HRS
     Route: 048
  3. LEVOTHYROXINE. [Concomitant]
     Active Substance: LEVOTHYROXINE
     Dosage: 88 UG, DAILY
     Route: 048
  4. ACIDOPHILUS PROBIOTIC [Concomitant]
     Dosage: 10 MG, DAILY
     Route: 048
  5. LOPERAMIDE [Concomitant]
     Active Substance: LOPERAMIDE
     Dosage: 2 MG, AS NEEDED
  6. PEPTO-BISMOL [Concomitant]
     Active Substance: BISMUTH SUBSALICYLATE\CALCIUM CARBONATE
     Dosage: 262 MG, UNK
     Route: 048
  7. LYRICA [Suspect]
     Active Substance: PREGABALIN
     Dosage: 75 MG, UNK
  8. GABAPENTIN. [Concomitant]
     Active Substance: GABAPENTIN
     Dosage: 300 MG, 1 CAPSULE(S) EVERY 6 HOURS)
     Route: 048
     Dates: end: 20151012
  9. EMOQUETTE [Concomitant]
     Active Substance: DESOGESTREL\ETHINYL ESTRADIOL
     Dosage: 1 DF, 1X/DAY
  10. METHOCARBAMOL. [Concomitant]
     Active Substance: METHOCARBAMOL
     Dosage: 750 MG, AS NEEDED (1 TABLET(S) EVERY 4 HOURS BY ORAL ROUTE AS NEEDED FOR 30 DAYS)
     Route: 048
  11. LYRICA [Suspect]
     Active Substance: PREGABALIN
     Dosage: 150 MG, 2X/DAY
     Route: 048
     Dates: start: 20151021
  12. BIOTIN [Concomitant]
     Active Substance: BIOTIN
     Dosage: 5 MG, UNK
     Route: 048

REACTIONS (4)
  - Syncope [Unknown]
  - Gait disturbance [Unknown]
  - Pain [Unknown]
  - Balance disorder [Unknown]
